FAERS Safety Report 24709415 (Version 2)
Quarter: 2024Q4

REPORT INFORMATION
  Report Type: Report from Study
  Country: US (occurrence: US)
  Receive Date: 20241209
  Receipt Date: 20241225
  Transmission Date: 20250115
  Serious: No
  Sender: ABBVIE
  Company Number: US-ABBVIE-6033146

PATIENT
  Age: 85 Year
  Sex: Female

DRUGS (2)
  1. CREON [Suspect]
     Active Substance: PANCRELIPASE AMYLASE\PANCRELIPASE LIPASE\PANCRELIPASE PROTEASE
     Indication: Pancreatic failure
     Dosage: 2 CAPS WITH MEALS; 1 CAP WITH SNACKS
     Route: 048
     Dates: start: 20240627
  2. CREON [Suspect]
     Active Substance: PANCRELIPASE AMYLASE\PANCRELIPASE LIPASE\PANCRELIPASE PROTEASE
     Indication: Pancreatic failure
     Dosage: LAST ADMIN DATE WAS 2024
     Route: 048
     Dates: start: 20240626

REACTIONS (7)
  - Pain [Not Recovered/Not Resolved]
  - Scar [Unknown]
  - Pain in extremity [Not Recovered/Not Resolved]
  - Chest pain [Recovered/Resolved with Sequelae]
  - Chest pain [Unknown]
  - Weight increased [Not Recovered/Not Resolved]
  - Bursitis [Unknown]

NARRATIVE: CASE EVENT DATE: 20240101
